FAERS Safety Report 20737395 (Version 4)
Quarter: 2022Q2

REPORT INFORMATION
  Report Type: Spontaneous
  Country: US (occurrence: US)
  Receive Date: 20220421
  Receipt Date: 20220526
  Transmission Date: 20220721
  Serious: Yes (Other)
  Sender: FDA-Public Use
  Company Number: US-Blueprint Medicines Corporation-SP-US-2022-001140

PATIENT
  Age: 47 Year
  Sex: Male

DRUGS (2)
  1. AYVAKIT [Suspect]
     Active Substance: AVAPRITINIB
     Indication: Systemic mastocytosis
     Route: 048
     Dates: start: 20190615
  2. AYVAKIT [Suspect]
     Active Substance: AVAPRITINIB
     Route: 048
     Dates: start: 20190619

REACTIONS (16)
  - Impaired gastric emptying [Not Recovered/Not Resolved]
  - Optic neuritis [Unknown]
  - Spinal disorder [Unknown]
  - Surgery [Unknown]
  - Bone pain [Not Recovered/Not Resolved]
  - Gut fermentation syndrome [Not Recovered/Not Resolved]
  - Dyspepsia [Unknown]
  - Drug ineffective [Unknown]
  - Micturition disorder [Not Recovered/Not Resolved]
  - Tryptase decreased [Not Recovered/Not Resolved]
  - Skin discolouration [Not Recovered/Not Resolved]
  - Decreased appetite [Unknown]
  - Tryptase increased [Unknown]
  - Fall [Unknown]
  - Joint injury [Unknown]
  - Cognitive disorder [Not Recovered/Not Resolved]

NARRATIVE: CASE EVENT DATE: 20190615
